FAERS Safety Report 8981333 (Version 1)
Quarter: 2012Q4

REPORT INFORMATION
  Report Type: 
  Country: US (occurrence: US)
  Receive Date: 20121221
  Receipt Date: 20121221
  Transmission Date: 20130627
  Serious: No
  Sender: FDA-Public Use
  Company Number: US-BAYER-2012-129682

PATIENT
  Age: 54 Year
  Sex: Male

DRUGS (5)
  1. ALEVE CAPLET/TABLET,MIDOL EXTENDED RELIEF CAPLET [Suspect]
     Indication: BACK ACHE
     Dosage: UNK
     Route: 048
  2. ALEVE CAPLET/TABLET,MIDOL EXTENDED RELIEF CAPLET [Suspect]
     Indication: BACK ACHE
     Dosage: 4 DF, ONCE
     Route: 048
  3. ALEVE CAPLET/TABLET,MIDOL EXTENDED RELIEF CAPLET [Suspect]
     Indication: BACK ACHE
     Dosage: 5 DF, ONCE
     Route: 048
  4. GABAPENTIN [Concomitant]
  5. BAYER EXTRA STRENGTH BACK + BODY PAIN [Concomitant]

REACTIONS (2)
  - Drug ineffective [None]
  - Overdose [None]
